FAERS Safety Report 10643339 (Version 1)
Quarter: 2014Q4

REPORT INFORMATION
  Report Type: Spontaneous
  Country: GB (occurrence: None)
  Receive Date: 20141201
  Receipt Date: 20141201
  Transmission Date: 20150529
  Serious: Yes (Other)
  Sender: FDA-Public Use
  Company Number: 2014GMK011096

PATIENT
  Age: 29 Year
  Sex: Female
  Weight: 54 kg

DRUGS (6)
  1. MONTELUKAST [Suspect]
     Active Substance: MONTELUKAST SODIUM
     Indication: RHINITIS ALLERGIC
     Route: 048
     Dates: start: 20140525, end: 20140603
  2. NASOFAN (FLUTICASONE PROPIONATE) [Concomitant]
  3. FEXOFENADINE [Concomitant]
     Active Substance: FEXOFENADINE\FEXOFENADINE HYDROCHLORIDE
  4. MARVELON (DESOGESTREL, ETHINYLESTRADIOL) [Concomitant]
  5. MONTELUKAST [Suspect]
     Active Substance: MONTELUKAST SODIUM
     Indication: ASTHMA
     Route: 048
     Dates: start: 20140525, end: 20140603
  6. MINOCIN (MINOCYCLINE HYDROCHLORIDE) [Concomitant]

REACTIONS (2)
  - Asthma [None]
  - Rhinitis allergic [None]

NARRATIVE: CASE EVENT DATE: 20140520
